FAERS Safety Report 24293704 (Version 1)
Quarter: 2024Q3

REPORT INFORMATION
  Report Type: Spontaneous
  Country: US (occurrence: None)
  Receive Date: 20240906
  Receipt Date: 20240906
  Transmission Date: 20241016
  Serious: No
  Sender: DOMPE FARMACEUTICI
  Company Number: US-FARMAPROD-202308-202402-0544

PATIENT
  Sex: Male
  Weight: 87.59 kg

DRUGS (26)
  1. OXERVATE [Suspect]
     Active Substance: CENEGERMIN-BKBJ
     Indication: Neurotrophic keratopathy
     Route: 047
     Dates: start: 20240202
  2. SYSTANE (HYPROMELLOSE 2910 (4000 MPA.S)) [Concomitant]
     Active Substance: HYPROMELLOSE 2910 (4000 MPA.S)
     Dosage: 0.3 %-0.4%
  3. DORZOLAMIDE [Concomitant]
     Active Substance: DORZOLAMIDE
  4. CRESTOR [Concomitant]
     Active Substance: ROSUVASTATIN CALCIUM
  5. RANOLAZINE [Concomitant]
     Active Substance: RANOLAZINE
     Dosage: FOR 12 HOURS
  6. MOUNJARO [Concomitant]
     Active Substance: TIRZEPATIDE
     Dosage: 2.5 MG/0.5 PEN INJECTOR
  7. FLAXSEED [Concomitant]
     Active Substance: FLAX SEED
  8. VITAMIN D3 [Concomitant]
     Active Substance: CHOLECALCIFEROL
  9. ALPRAZOLAM [Concomitant]
     Active Substance: ALPRAZOLAM
  10. XARELTO [Concomitant]
     Active Substance: RIVAROXABAN
  11. LINZESS [Concomitant]
     Active Substance: LINACLOTIDE
  12. NITROGLYCERIN [Concomitant]
     Active Substance: NITROGLYCERIN
     Dosage: 0.4 MG / HOUR, 24 HOURS.
  13. NITROGLYCERIN [Concomitant]
     Active Substance: NITROGLYCERIN
  14. GABAPENTIN [Concomitant]
     Active Substance: GABAPENTIN
  15. JARDIANCE [Concomitant]
     Active Substance: EMPAGLIFLOZIN
  16. PANTOPRAZOLE SODIUM [Concomitant]
     Active Substance: PANTOPRAZOLE SODIUM
  17. LEVOTHYROXINE SODIUM [Concomitant]
     Active Substance: LEVOTHYROXINE SODIUM
  18. ASPIRIN [Concomitant]
     Active Substance: ASPIRIN
  19. EZETIMIBE [Concomitant]
     Active Substance: EZETIMIBE
  20. ONDANSETRON [Concomitant]
     Active Substance: ONDANSETRON
     Dosage: ORALLY DISPERSIBLE TABLETS
  21. MULTAQ [Concomitant]
     Active Substance: DRONEDARONE
  22. ESCITALOPRAM OXALATE [Concomitant]
     Active Substance: ESCITALOPRAM OXALATE
  23. METOCLOPRAMIDE HYDROCHLORIDE [Concomitant]
     Active Substance: METOCLOPRAMIDE HYDROCHLORIDE
  24. NITROGLYCERIN [Concomitant]
     Active Substance: NITROGLYCERIN
  25. METOCLOPRAMIDE HYDROCHLORIDE [Concomitant]
     Active Substance: METOCLOPRAMIDE HYDROCHLORIDE
  26. CLEAR EYES NATURAL TEARS [Concomitant]
     Active Substance: POLYVINYL ALCOHOL\POVIDONE

REACTIONS (6)
  - Eye pain [Unknown]
  - Swelling of eyelid [Unknown]
  - Ocular hyperaemia [Unknown]
  - Eye inflammation [Unknown]
  - Eye infection [Unknown]
  - Hordeolum [Unknown]
